FAERS Safety Report 11876971 (Version 1)
Quarter: 2015Q4

REPORT INFORMATION
  Report Type: Report from Study
  Country: CH (occurrence: CH)
  Receive Date: 20151229
  Receipt Date: 20151229
  Transmission Date: 20160305
  Serious: Yes (Life-Threatening, Hospitalization, Other)
  Sender: FDA-Public Use
  Company Number: CH-009507513-1512CHE011908

PATIENT

DRUGS (2)
  1. TEMOZOLOMIDE. [Suspect]
     Active Substance: TEMOZOLOMIDE
     Dosage: 150-200 MG/M2/D FOR 5 DAYS EVERY 28 DAYS FOR 6-21 CYCLES
     Route: 048
  2. TEMOZOLOMIDE. [Suspect]
     Active Substance: TEMOZOLOMIDE
     Indication: GLIOBLASTOMA
     Dosage: UNK
     Route: 048

REACTIONS (30)
  - Seizure [Unknown]
  - Constipation [Unknown]
  - Vomiting [Unknown]
  - Leukopenia [Unknown]
  - Cardiac disorder [Unknown]
  - Diarrhoea [Unknown]
  - Bradyphrenia [Unknown]
  - Lymphopenia [Unknown]
  - Mental status changes [Unknown]
  - Skin disorder [Unknown]
  - Neutropenia [Unknown]
  - Headache [Unknown]
  - Anxiety [Unknown]
  - Psychotic disorder [Unknown]
  - Abdominal pain [Unknown]
  - Medical device site reaction [Unknown]
  - Metabolic disorder [Unknown]
  - Adverse event [Unknown]
  - Respiratory disorder [Unknown]
  - Pulmonary embolism [Unknown]
  - Thrombocytopenia [Unknown]
  - Fatigue [Unknown]
  - Infection [Unknown]
  - Nutritional condition abnormal [Unknown]
  - Musculoskeletal disorder [Unknown]
  - Anaemia [Unknown]
  - Confusional state [Unknown]
  - Deep vein thrombosis [Unknown]
  - Eye disorder [Unknown]
  - Fall [Unknown]
